FAERS Safety Report 8764772 (Version 1)
Quarter: 2012Q4

REPORT INFORMATION
  Report Type: 
  Country: IT (occurrence: IT)
  Receive Date: 20120831
  Receipt Date: 20120831
  Transmission Date: 20130627
  Serious: Yes (Hospitalization)
  Sender: FDA-Public Use
  Company Number: IT-ROCHE-1107784

PATIENT
  Age: 70 Year
  Sex: Female

DRUGS (9)
  1. HERCEPTIN [Suspect]
     Indication: BREAST CANCER
     Dosage: Form of adminstration was reported as powder (150 mg)  for infusional solution
     Route: 041
     Dates: start: 20120820, end: 20120820
  2. LANSOPRAZOLE [Concomitant]
     Route: 048
  3. EUTIROX [Concomitant]
     Route: 048
  4. KARVEA [Concomitant]
     Route: 048
  5. LASIX [Concomitant]
     Route: 048
  6. CARDIOASPIRIN [Concomitant]
     Route: 048
  7. CARDICOR [Concomitant]
     Route: 048
  8. SOLDESAM [Concomitant]
     Dosage: Form of adminstration was reported as Injectable solution
     Route: 030
  9. OXYCONTIN [Concomitant]
     Route: 048

REACTIONS (2)
  - Haematoma [Unknown]
  - Platelet count decreased [Unknown]
